FAERS Safety Report 8449307-1 (Version None)
Quarter: 2012Q2

REPORT INFORMATION
  Report Type: 
  Country: None (occurrence: None)
  Receive Date: 20120619
  Receipt Date: 20120607
  Transmission Date: 20120825
  Serious: Yes (Hospitalization, Other)
  Sender: FDA-Public Use
  Company Number: US-CELGENEUS-163-21660-12051642

PATIENT
  Sex: Female
  Weight: 85.8 kg

DRUGS (38)
  1. ZOFRAN [Concomitant]
     Indication: NAUSEA
     Dosage: 8 MILLIGRAM
     Route: 048
     Dates: start: 20120315
  2. ALLOPURINOL [Concomitant]
     Dosage: 200 MILLIGRAM
     Route: 048
     Dates: start: 20120519
  3. ALLOPURINOL [Concomitant]
     Dosage: 100 MILLIGRAM
     Route: 048
     Dates: start: 20120528
  4. FLOMAX [Concomitant]
     Dosage: .4 MILLIGRAM
     Route: 048
     Dates: start: 20120519
  5. ZOSYN [Concomitant]
     Dosage: 4.5 GRAM
     Route: 041
     Dates: start: 20120525
  6. CALCIUM GLUCONATE [Concomitant]
     Dosage: 1 GRAM
     Route: 041
     Dates: start: 20120526
  7. GEMCITABINE [Suspect]
     Dosage: 1820 MILLIGRAM
     Route: 041
     Dates: start: 20120315
  8. LORAZEPAM [Concomitant]
     Indication: ANXIETY
     Dosage: .5 MILLIGRAM
     Route: 048
  9. TRAZODONE HCL [Concomitant]
     Indication: ANXIETY
     Dosage: 1 TABLET
     Route: 048
  10. LISINOPRIL [Concomitant]
     Indication: HYPERTENSION
     Dosage: 10/12.5MG
     Route: 048
     Dates: end: 20120513
  11. POTASSIUM CHLORIDE [Concomitant]
     Dosage: 10 MILLIEQUIVALENTS
     Route: 065
     Dates: start: 20120527, end: 20120528
  12. PANTOPRAZOLE [Concomitant]
     Dosage: 4 MILLIGRAM
     Route: 048
     Dates: start: 20120530
  13. HEPARIN [Concomitant]
     Dosage: 18 IU (INTERNATIONAL UNIT)
     Route: 041
     Dates: start: 20120527
  14. NYSTATIN [Concomitant]
     Indication: MUCOSAL INFECTION
  15. NEULASTA [Concomitant]
     Indication: NEUTROPENIA
     Dosage: 6 MILLIGRAM
     Route: 058
     Dates: start: 20120427, end: 20120427
  16. VANCOMYCIN [Concomitant]
     Dosage: 1.5 GRAM
     Route: 041
     Dates: start: 20120527, end: 20120527
  17. HEPARIN [Concomitant]
     Dosage: 5000 IU (INTERNATIONAL UNIT)
     Route: 058
     Dates: start: 20120526, end: 20120527
  18. TOLTERODINE TARTRATE [Concomitant]
     Dosage: 4 MILLIGRAM
     Route: 048
     Dates: start: 20120528
  19. GEMCITABINE [Suspect]
     Dosage: 1820 MILLIGRAM
     Route: 041
     Dates: start: 20120510, end: 20120524
  20. NEULASTA [Concomitant]
  21. COMPAZINE [Concomitant]
     Indication: NAUSEA
     Dosage: 10 MILLIGRAM
     Route: 048
     Dates: start: 20120315
  22. LEVOFLOXACIN [Concomitant]
     Route: 065
     Dates: start: 20120525, end: 20120526
  23. CITALOPRAM [Concomitant]
     Indication: ANXIETY
     Dosage: 1 TABLET
     Route: 048
  24. CELEBREX [Concomitant]
     Indication: ARTHRITIS
     Dosage: 200 MILLIGRAM
     Route: 048
  25. HYDROCODONE [Concomitant]
     Indication: ARTHRITIS
     Dosage: 7.5 MILLIGRAM
     Route: 048
  26. AUGMENTIN '125' [Concomitant]
     Indication: STENT PLACEMENT
     Dosage: 1 TABLET
     Route: 048
     Dates: start: 20120519, end: 20120524
  27. ALBUMIN (HUMAN) [Concomitant]
     Route: 065
     Dates: start: 20120525, end: 20120525
  28. PANTOPRAZOLE [Concomitant]
     Dosage: 40 MILLIGRAM
     Route: 041
     Dates: start: 20120525, end: 20120528
  29. AZITHROMYCIN [Concomitant]
     Dosage: 500 MILLIGRAM
     Route: 041
     Dates: start: 20120528, end: 20120530
  30. NYSTATIN [Concomitant]
     Dosage: 180 MILLIGRAM
     Route: 048
     Dates: start: 20120404, end: 20120412
  31. POTASSIUM CHLORIDE [Concomitant]
     Dosage: 20 MILLIEQUIVALENTS
     Route: 065
     Dates: start: 20120510
  32. ZOSYN [Concomitant]
     Route: 065
     Dates: start: 20120527
  33. ABRAXANE [Suspect]
     Dosage: 228 MILLIGRAM
     Route: 041
     Dates: start: 20120315
  34. ABRAXANE [Suspect]
     Dosage: 228 MILLIGRAM
     Route: 041
     Dates: start: 20120510, end: 20120524
  35. WHOLE BLOOD [Concomitant]
     Dosage: 2 UNITS
     Route: 041
     Dates: start: 20120426, end: 20120503
  36. VANCOMYCIN [Concomitant]
     Dosage: 1 GRAM
     Route: 041
     Dates: start: 20120526, end: 20120526
  37. HEPARIN [Concomitant]
     Route: 065
     Dates: start: 20120525
  38. INSULIN LISPRO [Concomitant]
     Route: 065
     Dates: start: 20120529

REACTIONS (8)
  - HYPOXIA [None]
  - PNEUMONITIS [None]
  - ANAEMIA [None]
  - HYPERURICAEMIA [None]
  - DYSPNOEA [None]
  - RENAL FAILURE ACUTE [None]
  - BLOOD CREATININE INCREASED [None]
  - NEPHROLITHIASIS [None]
